FAERS Safety Report 9760371 (Version 1)
Quarter: 2013Q4

REPORT INFORMATION
  Report Type: Spontaneous
  Country: US (occurrence: US)
  Receive Date: 20131216
  Receipt Date: 20131216
  Transmission Date: 20140711
  Serious: No
  Sender: FDA-Public Use
  Company Number: US-GILEAD-2010-0029185

PATIENT
  Sex: Female
  Weight: 74.84 kg

DRUGS (7)
  1. LETAIRIS [Suspect]
     Indication: PULMONARY ARTERIAL HYPERTENSION
     Route: 048
     Dates: start: 20090418
  2. HYDRALAZINE HCL [Concomitant]
  3. NIFEDIPINE [Concomitant]
  4. NOVOLIN [Concomitant]
  5. REVATIO [Concomitant]
  6. PRAVASTATIN SODIUM [Concomitant]
  7. PHOSLO [Concomitant]

REACTIONS (3)
  - Increased upper airway secretion [Unknown]
  - Epistaxis [Unknown]
  - Cough [Unknown]
